FAERS Safety Report 9736022 (Version 1)
Quarter: 2013Q4

REPORT INFORMATION
  Report Type: Spontaneous
  Country: US (occurrence: None)
  Receive Date: 20131205
  Receipt Date: 20131205
  Transmission Date: 20140711
  Serious: No
  Sender: FDA-Public Use
  Company Number: None

PATIENT
  Age: 61 Year
  Sex: Male
  Weight: 85.7 kg

DRUGS (1)
  1. CISPLATIN [Suspect]
     Indication: TRANSITIONAL CELL CARCINOMA
     Dosage: 142 MG ONCE ON DAY 1 INTRAVENOUS
     Route: 042
     Dates: start: 20131108

REACTIONS (6)
  - Injection site irritation [None]
  - Injection site swelling [None]
  - Injection site erythema [None]
  - Scar [None]
  - Cellulitis [None]
  - Blister [None]
